FAERS Safety Report 16740111 (Version 1)
Quarter: 2019Q3

REPORT INFORMATION
  Report Type: Spontaneous
  Country: US (occurrence: US)
  Receive Date: 20190709
  Receipt Date: 20190709
  Transmission Date: 20191005
  Serious: No
  Sender: FDA-Public Use
  Company Number: None

PATIENT
  Age: 78 Year
  Sex: Male
  Weight: 49.9 kg

DRUGS (1)
  1. ZOLEDRONIC ACID 5 MG/100 ML, 5 MG/100ML [Suspect]
     Active Substance: ZOLEDRONIC ACID
     Indication: SENILE OSTEOPOROSIS
     Dosage: ?          OTHER FREQUENCY:15 MIN EVERY YEAR ;?
     Route: 042
     Dates: start: 201907

REACTIONS (1)
  - Emergency care [None]
